FAERS Safety Report 6862519-3 (Version None)
Quarter: 2010Q3

REPORT INFORMATION
  Report Type: 
  Country: None (occurrence: None)
  Receive Date: 20100716
  Receipt Date: 20100701
  Transmission Date: 20110219
  Serious: Yes (Other)
  Sender: FDA-Public Use
  Company Number: 2010002684

PATIENT
  Age: 31 Year
  Sex: Female

DRUGS (2)
  1. TARCEVA [Suspect]
     Indication: PANCREATIC CARCINOMA
     Dosage: (100 MG, QD), ORAL
     Route: 048
     Dates: start: 20091123
  2. GEMCITABINE [Concomitant]

REACTIONS (7)
  - DERMATITIS ACNEIFORM [None]
  - DISEASE PROGRESSION [None]
  - NEUTROPENIA [None]
  - PANCREATIC CARCINOMA [None]
  - RASH [None]
  - THROMBOCYTOPENIA [None]
  - VOMITING [None]
